FAERS Safety Report 6148094-X (Version None)
Quarter: 2009Q2

REPORT INFORMATION
  Report Type: 
  Country: None (occurrence: None)
  Receive Date: 20090408
  Receipt Date: 20090402
  Transmission Date: 20091009
  Serious: Yes (Other)
  Sender: FDA-Public Use
  Company Number: D0060500A

PATIENT
  Sex: Female
  Weight: 110 kg

DRUGS (1)
  1. ARIXTRA [Suspect]
     Indication: THROMBOSIS PROPHYLAXIS
     Dosage: 10MG PER DAY
     Route: 058

REACTIONS (2)
  - DRUG INEFFECTIVE [None]
  - THROMBOSIS [None]
